FAERS Safety Report 4303806-2 (Version None)
Quarter: 2004Q1

REPORT INFORMATION
  Report Type: 
  Country: None (occurrence: None)
  Receive Date: 20040224
  Receipt Date: 20040220
  Transmission Date: 20041129
  Serious: Yes (Life-Threatening, Other)
  Sender: FDA-Public Use
  Company Number: 04-02-0268

PATIENT
  Age: 55 Year
  Sex: Male

DRUGS (5)
  1. BACLOFEN [Suspect]
     Dosage: 80 MG ORAL
     Route: 048
     Dates: start: 20040101, end: 20040207
  2. GABAPENTIN [Concomitant]
  3. MOVICOL [Concomitant]
  4. SALBUTAMOL [Concomitant]
  5. VITAMIN C [Concomitant]

REACTIONS (2)
  - BRADYCARDIA [None]
  - DIZZINESS [None]
